FAERS Safety Report 5222420-8 (Version None)
Quarter: 2007Q1

REPORT INFORMATION
  Report Type: 
  Country: None (occurrence: None)
  Receive Date: 20070124
  Receipt Date: 20070109
  Transmission Date: 20070707
  Serious: Yes (Other)
  Sender: FDA-Public Use
  Company Number: 2006US-05194

PATIENT
  Age: 19 Year

DRUGS (4)
  1. ISOTRETINOIN [Suspect]
     Indication: ACNE
     Dosage: 40 MG, QD
     Dates: start: 20060911, end: 20061111
  2. SYNTHROID [Concomitant]
  3. RISPERDAL [Concomitant]
  4. PROZAC [Concomitant]

REACTIONS (1)
  - STAPHYLOCOCCAL INFECTION [None]
